FAERS Safety Report 20904652 (Version 1)
Quarter: 2022Q2

REPORT INFORMATION
  Report Type: Spontaneous
  Country: IN (occurrence: IN)
  Receive Date: 20220602
  Receipt Date: 20220602
  Transmission Date: 20220721
  Serious: Yes (Other)
  Sender: FDA-Public Use
  Company Number: IN-STRIDES ARCOLAB LIMITED-2022SP006512

PATIENT
  Age: 21 Year
  Sex: Male

DRUGS (8)
  1. BUSPIRONE HYDROCHLORIDE [Suspect]
     Active Substance: BUSPIRONE HYDROCHLORIDE
     Indication: Mental disorder
     Dosage: 5 MILLIGRAM PER DAY
     Route: 048
  2. BUSPIRONE HYDROCHLORIDE [Suspect]
     Active Substance: BUSPIRONE HYDROCHLORIDE
     Indication: Gender dysphoria
  3. SERTRALINE [Suspect]
     Active Substance: SERTRALINE HYDROCHLORIDE
     Indication: Mental disorder
     Dosage: 100 MILLIGRAM PER DAY
     Route: 048
  4. SERTRALINE [Suspect]
     Active Substance: SERTRALINE HYDROCHLORIDE
     Indication: Gender dysphoria
  5. PERPHENAZINE [Suspect]
     Active Substance: PERPHENAZINE
     Indication: Mental disorder
     Dosage: 2 MILLIGRAM, BID
     Route: 048
  6. PERPHENAZINE [Suspect]
     Active Substance: PERPHENAZINE
     Indication: Gender dysphoria
  7. PALIPERIDONE [Suspect]
     Active Substance: PALIPERIDONE
     Indication: Mental disorder
     Dosage: UNK
     Route: 030
  8. PALIPERIDONE [Suspect]
     Active Substance: PALIPERIDONE
     Indication: Gender dysphoria

REACTIONS (2)
  - Hyperprolactinaemia [Recovered/Resolved]
  - Off label use [Unknown]
